FAERS Safety Report 14760577 (Version 1)
Quarter: 2018Q2

REPORT INFORMATION
  Report Type: Spontaneous
  Country: US (occurrence: US)
  Receive Date: 20180414
  Receipt Date: 20180414
  Transmission Date: 20180711
  Serious: No
  Sender: FDA-Public Use
  Company Number: US-JNJFOC-20180345008

PATIENT
  Sex: Male
  Weight: 64.41 kg

DRUGS (1)
  1. LEVAQUIN [Suspect]
     Active Substance: LEVOFLOXACIN
     Indication: PNEUMONIA
     Dosage: STARTED 20 YEARS AGO
     Route: 065

REACTIONS (2)
  - Vision blurred [Unknown]
  - Body height decreased [Unknown]
